FAERS Safety Report 7125888-5 (Version None)
Quarter: 2010Q4

REPORT INFORMATION
  Report Type: 
  Country: None (occurrence: None)
  Receive Date: 20101129
  Receipt Date: 20101117
  Transmission Date: 20110411
  Serious: Yes (Hospitalization)
  Sender: FDA-Public Use
  Company Number: JP-JNJFOC-20101102959

PATIENT
  Age: 93 Year
  Sex: Male

DRUGS (2)
  1. DUROTEP MT [Suspect]
     Indication: PAIN
     Route: 062
  2. CODEINE PHOSPHATE [Concomitant]
     Dosage: FOR 7 DAYS
     Route: 065

REACTIONS (3)
  - DIZZINESS [None]
  - FALL [None]
  - VOMITING [None]
